FAERS Safety Report 9391509 (Version 3)
Quarter: 2014Q2

REPORT INFORMATION
  Report Type: Spontaneous
  Country: US (occurrence: US)
  Receive Date: 20130709
  Receipt Date: 20140506
  Transmission Date: 20141212
  Serious: Yes (Other)
  Sender: FDA-Public Use
  Company Number: US-TEVA-417611USA

PATIENT
  Age: 30 Year
  Sex: Female
  Weight: 83.08 kg

DRUGS (6)
  1. PARAGARD 380A [Suspect]
     Indication: CONTRACEPTION
     Route: 015
     Dates: start: 20060414, end: 20130625
  2. TAGAMET [Concomitant]
     Dates: start: 20120910
  3. LISINOPRIL [Concomitant]
     Indication: HYPERTENSION
     Dosage: 20 MILLIGRAM DAILY;
  4. PAXIL [Concomitant]
     Indication: ANXIETY
  5. ALDOMET [Concomitant]
  6. PANTOPRAZOLE [Concomitant]

REACTIONS (3)
  - Pregnancy with contraceptive device [Recovered/Resolved]
  - Drug ineffective [Recovered/Resolved]
  - Medical device complication [Unknown]
